FAERS Safety Report 4855261-1 (Version None)
Quarter: 2005Q4

REPORT INFORMATION
  Report Type: 
  Country: None (occurrence: None)
  Receive Date: 20051214
  Receipt Date: 20051208
  Transmission Date: 20060501
  Serious: Yes (Hospitalization)
  Sender: FDA-Public Use
  Company Number: 2005US-01324

PATIENT

DRUGS (1)
  1. ACETAMINOPHEN AND CODEINE PHOSPHATE [Suspect]
     Indication: PYREXIA

REACTIONS (8)
  - APNOEA [None]
  - CYANOSIS [None]
  - DEPRESSED LEVEL OF CONSCIOUSNESS [None]
  - HYPOTONIA [None]
  - MEDICATION ERROR [None]
  - MENTAL STATUS CHANGES [None]
  - PNEUMONIA [None]
  - RESPIRATORY DISTRESS [None]
